FAERS Safety Report 25895773 (Version 1)
Quarter: 2025Q4

REPORT INFORMATION
  Report Type: Spontaneous
  Country: US (occurrence: US)
  Receive Date: 20251008
  Receipt Date: 20251008
  Transmission Date: 20260118
  Serious: Yes (Hospitalization, Other)
  Sender: TEVA
  Company Number: US-TEVA-VS-3380203

PATIENT
  Age: 25 Year
  Sex: Male

DRUGS (1)
  1. FENTANYL [Suspect]
     Active Substance: FENTANYL
     Indication: Substance abuse
     Route: 065

REACTIONS (5)
  - Lactic acidosis [Recovering/Resolving]
  - CHANTER syndrome [Recovering/Resolving]
  - Substance abuse [Unknown]
  - Loss of consciousness [Recovering/Resolving]
  - Leukocytosis [Recovering/Resolving]
